FAERS Safety Report 5794043-3 (Version None)
Quarter: 2008Q2

REPORT INFORMATION
  Report Type: 
  Country: None (occurrence: None)
  Receive Date: 20080627
  Receipt Date: 20080617
  Transmission Date: 20081010
  Serious: Yes (Other)
  Sender: FDA-Public Use
  Company Number: US-ABBOTT-08P-163-0459702-00

PATIENT
  Sex: Female

DRUGS (2)
  1. RITONAVIR SOFT GELATIN CAPSULES [Suspect]
     Indication: HIV INFECTION
     Dosage: 250/100MG
  2. APTIVUS [Suspect]
     Indication: HIV INFECTION
     Dosage: 250/100MG

REACTIONS (1)
  - HEPATOTOXICITY [None]
